FAERS Safety Report 23737771 (Version 2)
Quarter: 2024Q2

REPORT INFORMATION
  Report Type: Spontaneous
  Country: US (occurrence: US)
  Receive Date: 20240412
  Receipt Date: 20240502
  Transmission Date: 20240716
  Serious: Yes (Hospitalization, Other)
  Sender: FDA-Public Use
  Company Number: US-PFIZER INC-202400079183

PATIENT
  Age: 48 Year
  Sex: Female
  Weight: 88.889 kg

DRUGS (5)
  1. PAXLOVID [Suspect]
     Active Substance: NIRMATRELVIR\RITONAVIR
     Indication: COVID-19 treatment
     Dosage: TAKE 3 TABLETS BY MOUTH 2 (TWO) TIMES DAILY FOR 5 DAYS THE DOSAGE FOR PAXLOVID IS 300 MG NJRMATRELVI
     Route: 048
     Dates: start: 20231220, end: 20231225
  2. ZITHROMAX [Concomitant]
     Active Substance: AZITHROMYCIN DIHYDRATE
     Dosage: TAKE TWO 250MG TABS PO DAY ONE THEN ONE 250MG TAB DAILY X 4 DAYS
     Route: 048
     Dates: start: 20231220, end: 20240120
  3. PROVENTIL HFA [Concomitant]
     Active Substance: ALBUTEROL SULFATE
     Indication: Wheezing
     Dosage: UNK, INHALE 2 PUFFS INTO THE LUNGS EVERY 4 (FOUR) HOURS AS NEEDED
     Route: 055
     Dates: start: 20231215, end: 20240213
  4. PROVENTIL HFA [Concomitant]
     Active Substance: ALBUTEROL SULFATE
     Indication: Dyspnoea
  5. DELTASONE [Concomitant]
     Active Substance: PREDNISONE
     Dosage: TAKE 1 TABLET (10 MG) BY MOUTH DAILY FOR 5 DAYS
     Route: 048
     Dates: start: 20231215, end: 20231220

REACTIONS (1)
  - Appendicitis [Recovered/Resolved]

NARRATIVE: CASE EVENT DATE: 20240122
